FAERS Safety Report 8879141 (Version 1)
Quarter: 2012Q4

REPORT INFORMATION
  Report Type: Spontaneous
  Country: US (occurrence: None)
  Receive Date: 20121026
  Receipt Date: 20121026
  Transmission Date: 20130627
  Serious: Yes (Hospitalization)
  Sender: FDA-Public Use
  Company Number: None

PATIENT
  Age: 28 Year
  Sex: Female
  Weight: 90.72 kg

DRUGS (1)
  1. MIRENA [Suspect]
     Indication: CONTRACEPTION
     Dosage: 1 placement
     Route: 019
     Dates: start: 20041101, end: 20050101

REACTIONS (5)
  - Uterine perforation [None]
  - Uterine infection [None]
  - Vaginal haemorrhage [None]
  - Medical device complication [None]
  - Dehydration [None]
